FAERS Safety Report 6326878-2 (Version None)
Quarter: 2009Q3

REPORT INFORMATION
  Report Type: 
  Country: None (occurrence: None)
  Receive Date: 20090825
  Receipt Date: 20090813
  Transmission Date: 20100115
  Serious: Yes (Hospitalization)
  Sender: FDA-Public Use
  Company Number: FR-WYE-H10659109

PATIENT
  Sex: Male

DRUGS (12)
  1. CORDARONE [Suspect]
     Route: 048
  2. SINTROM [Interacting]
     Indication: PROPHYLAXIS
     Route: 048
     Dates: start: 20090412, end: 20090427
  3. SINTROM [Interacting]
     Route: 048
     Dates: start: 20090401, end: 20090430
  4. SINTROM [Interacting]
     Route: 048
     Dates: start: 20090501
  5. TAHOR [Interacting]
     Route: 048
  6. FLUINDIONE [Interacting]
     Dosage: DOSE AND FREQUENCY NOT SPECIFIED
     Route: 048
     Dates: end: 20090412
  7. EZETROL [Concomitant]
     Dosage: DOSE AND FREQUENCY NOT SPECIFIED
     Route: 048
  8. LANSOPRAZOLE [Concomitant]
     Dosage: DOSE AND FREQUENCY NOT SPECIFIED
     Route: 048
  9. IKOREL [Concomitant]
     Route: 048
  10. SELOKEN [Concomitant]
     Route: 048
  11. KARDEGIC [Interacting]
     Route: 048
  12. LEVOTHYROXINE SODIUM [Interacting]
     Route: 048

REACTIONS (2)
  - DRUG INTERACTION [None]
  - INTERNATIONAL NORMALISED RATIO INCREASED [None]
